FAERS Safety Report 23175752 (Version 1)
Quarter: 2023Q4

REPORT INFORMATION
  Report Type: Other
  Country: HR (occurrence: HR)
  Receive Date: 20231113
  Receipt Date: 20231113
  Transmission Date: 20240109
  Serious: Yes (Hospitalization)
  Sender: FDA-Public Use
  Company Number: HR-ROCHE-3455049

PATIENT
  Age: 2 Year
  Sex: Female

DRUGS (2)
  1. ALTEPLASE [Suspect]
     Active Substance: ALTEPLASE
     Indication: Fibrinolysis
     Route: 034
  2. ALTEPLASE [Suspect]
     Active Substance: ALTEPLASE
     Route: 032

REACTIONS (6)
  - Cardiovascular disorder [Recovered/Resolved]
  - Cardiac tamponade [Recovered/Resolved]
  - Pneumonia [Recovered/Resolved]
  - Off label use [Unknown]
  - Pericardial effusion [Recovered/Resolved]
  - Pulmonary embolism [Recovered/Resolved]
